FAERS Safety Report 5586390-5 (Version None)
Quarter: 2008Q1

REPORT INFORMATION
  Report Type: 
  Country: None (occurrence: None)
  Receive Date: 20080110
  Receipt Date: 20080104
  Transmission Date: 20080703
  Serious: Yes (Other)
  Sender: FDA-Public Use
  Company Number: PHNR2008AU00448

PATIENT
  Sex: Male

DRUGS (1)
  1. SIMULECT [Suspect]
     Route: 065
     Dates: start: 20070101

REACTIONS (2)
  - DIALYSIS [None]
  - RENAL FAILURE [None]
